FAERS Safety Report 25599079 (Version 1)
Quarter: 2025Q3

REPORT INFORMATION
  Report Type: Other
  Country: GB (occurrence: GB)
  Receive Date: 20250724
  Receipt Date: 20250724
  Transmission Date: 20251020
  Serious: Yes (Disabling, Other)
  Sender: LUPIN
  Company Number: GB-LUPIN PHARMACEUTICALS INC.-2025-06514

PATIENT

DRUGS (1)
  1. SERTRALINE [Suspect]
     Active Substance: SERTRALINE HYDROCHLORIDE
     Indication: Product used for unknown indication
     Route: 065

REACTIONS (1)
  - Mitochondrial myopathy [Recovering/Resolving]
